FAERS Safety Report 20566607 (Version 2)
Quarter: 2022Q2

REPORT INFORMATION
  Report Type: Report from Study
  Country: JP (occurrence: JP)
  Receive Date: 20220308
  Receipt Date: 20220413
  Transmission Date: 20220721
  Serious: Yes (Other)
  Sender: FDA-Public Use
  Company Number: JP-TAKEDA-2020TJP000331

PATIENT
  Age: 73 Year
  Sex: Male
  Weight: 84.9 kg

DRUGS (11)
  1. LEUPROLIDE ACETATE [Suspect]
     Active Substance: LEUPROLIDE ACETATE
     Indication: Bulbospinal muscular atrophy congenital
     Dosage: 11.25 MILLIGRAM, Q3MONTHS
     Route: 058
     Dates: start: 20181029
  2. LYRICA [Concomitant]
     Active Substance: PREGABALIN
     Indication: Product used for unknown indication
     Dosage: 300 MILLIGRAM
     Route: 065
  3. METHYLCOBALAMIN [Concomitant]
     Active Substance: METHYLCOBALAMIN
     Indication: Product used for unknown indication
     Dosage: 1500 MICROGRAM
     Route: 065
  4. HERBALS [Concomitant]
     Active Substance: HERBALS
     Indication: Bulbospinal muscular atrophy congenital
     Dosage: 7.5 GRAM
     Route: 065
     Dates: start: 20200911
  5. VESICARE [Concomitant]
     Active Substance: SOLIFENACIN SUCCINATE
     Indication: Pollakiuria
     Dosage: 5 MILLIGRAM
     Route: 065
     Dates: start: 20200727, end: 20201019
  6. VESICARE [Concomitant]
     Active Substance: SOLIFENACIN SUCCINATE
     Dosage: 5 MILLIGRAM
     Route: 065
     Dates: start: 20210517
  7. ETIZOLAM [Concomitant]
     Active Substance: ETIZOLAM
     Indication: Product used for unknown indication
     Dosage: 1 MILLIGRAM
     Route: 065
     Dates: start: 20200911, end: 20201018
  8. ETIZOLAM [Concomitant]
     Active Substance: ETIZOLAM
     Dosage: 2 MILLIGRAM
     Route: 065
     Dates: start: 20201019
  9. CYMBALTA [Concomitant]
     Active Substance: DULOXETINE HYDROCHLORIDE
     Indication: Product used for unknown indication
     Dosage: 20 MILLIGRAM
     Route: 065
     Dates: start: 20200615, end: 20200727
  10. BELSOMRA [Concomitant]
     Active Substance: SUVOREXANT
     Indication: Insomnia
     Dosage: 15 MILLIGRAM
     Route: 065
     Dates: start: 20191115, end: 20191227
  11. TRAZODONE HYDROCHLORIDE [Concomitant]
     Active Substance: TRAZODONE HYDROCHLORIDE
     Indication: Insomnia
     Dosage: 25 MILLIGRAM
     Route: 065
     Dates: start: 20191115, end: 20191227

REACTIONS (1)
  - Erectile dysfunction [Not Recovered/Not Resolved]

NARRATIVE: CASE EVENT DATE: 20191115
